FAERS Safety Report 9355497 (Version 2)
Quarter: 2013Q2

REPORT INFORMATION
  Report Type: Spontaneous
  Country: FR (occurrence: FR)
  Receive Date: 20130619
  Receipt Date: 20130628
  Transmission Date: 20140414
  Serious: Yes (Hospitalization, Other)
  Sender: FDA-Public Use
  Company Number: FR-PFIZER INC-2013180508

PATIENT
  Age: 95 Year
  Sex: Female

DRUGS (14)
  1. NEURONTIN [Suspect]
     Dosage: 300 MG, UNK
  2. TEMESTA [Suspect]
     Dosage: 1 MG, 1X/DAY
     Route: 048
     Dates: end: 20130303
  3. TRAMADOL HYDROCHLORIDE [Suspect]
     Dosage: UNK
     Dates: end: 20130302
  4. IKOREL [Suspect]
     Dosage: 10 MG, 1X/DAY
     Route: 048
     Dates: end: 20130304
  5. LAROXYL [Suspect]
     Dosage: 40 MG/ML, 15 GTT/DAY
     Route: 048
     Dates: end: 20130301
  6. COVERSYL [Suspect]
     Dosage: 2.5 MG, 1X/DAY
     Route: 048
     Dates: end: 20130303
  7. LASILIX [Suspect]
     Dosage: 80 MG, 1X/DAY
     Route: 048
     Dates: end: 20130303
  8. OXEOL [Concomitant]
     Dosage: UNK
  9. TARDYFERON [Concomitant]
     Dosage: UNK
  10. DIFFU K [Concomitant]
     Dosage: UNK
  11. HEMIGOXINE NATIVELLE [Concomitant]
     Dosage: UNK
  12. DEBRIDAT [Concomitant]
     Dosage: UNK
  13. FORLAX [Concomitant]
     Dosage: UNK
  14. AUGMENTIN [Concomitant]
     Dosage: UNK

REACTIONS (7)
  - Confusional state [Recovered/Resolved]
  - Fall [Recovered/Resolved]
  - Kidney infection [Recovered/Resolved]
  - Rhabdomyolysis [Recovered/Resolved]
  - Renal failure acute [Recovered/Resolved]
  - Dehydration [Unknown]
  - Urinary retention [Unknown]
